FAERS Safety Report 22687654 (Version 2)
Quarter: 2023Q4

REPORT INFORMATION
  Report Type: Spontaneous
  Country: AT (occurrence: AT)
  Receive Date: 20230710
  Receipt Date: 20231003
  Transmission Date: 20240110
  Serious: Yes (Other)
  Sender: FDA-Public Use
  Company Number: AT-GLPHARMA-23.0663

PATIENT
  Age: 77 Year
  Sex: Female
  Weight: 51.9 kg

DRUGS (5)
  1. HYDROCHLOROTHIAZIDE\LISINOPRIL [Suspect]
     Active Substance: HYDROCHLOROTHIAZIDE\LISINOPRIL
     Indication: Product used for unknown indication
     Dosage: 0.5 DOSAGE FORM, BID (1/2 TABLET IN THE MORNINGS
     Route: 065
     Dates: end: 202308
  2. HYDROCHLOROTHIAZIDE\LISINOPRIL [Suspect]
     Active Substance: HYDROCHLOROTHIAZIDE\LISINOPRIL
     Dosage: 1 DOSAGE FORM, QD (1 TABLET PER DAY. 1 PACKAGE OF
     Route: 065
     Dates: end: 202308
  3. BISOPROLOL FUMARATE [Concomitant]
     Active Substance: BISOPROLOL FUMARATE
     Dosage: 2 1/2 IN THE MORNINGS, 2 1/2 IN THE EVENINGS
     Route: 065
  4. VIMPAT [Concomitant]
     Active Substance: LACOSAMIDE
     Indication: Epilepsy
     Dosage: EVERY 6 DAYS 1 TABLET
     Route: 065
     Dates: start: 2015
  5. XARELTO [Concomitant]
     Active Substance: RIVAROXABAN
     Dosage: 20 MILLIGRAM, QD (20 MG PER DAY)
     Route: 065

REACTIONS (26)
  - Haemorrhage [Recovered/Resolved]
  - Angina pectoris [Recovering/Resolving]
  - Blood pressure fluctuation [Recovered/Resolved]
  - Asthenopia [Recovered/Resolved]
  - Gingival recession [Not Recovered/Not Resolved]
  - Gait disturbance [Recovered/Resolved]
  - Night sweats [Recovered/Resolved]
  - Visual impairment [Recovered/Resolved]
  - Eye swelling [Recovered/Resolved]
  - Purulence [Recovered/Resolved]
  - Oropharyngeal pain [Recovered/Resolved]
  - Epistaxis [Recovered/Resolved]
  - Dental restoration failure [Not Recovered/Not Resolved]
  - Ulcer [Recovered/Resolved]
  - Swelling face [Recovered/Resolved]
  - Oral pain [Not Recovered/Not Resolved]
  - Alopecia [Recovered/Resolved]
  - Cough [Recovered/Resolved]
  - Arthralgia [Recovered/Resolved]
  - Headache [Recovered/Resolved]
  - Swollen tongue [Recovered/Resolved]
  - Nausea [Recovered/Resolved]
  - Dizziness [Recovered/Resolved]
  - Treatment noncompliance [Recovered/Resolved]
  - Intentional product use issue [Recovered/Resolved]
  - Product substitution issue [Recovered/Resolved]

NARRATIVE: CASE EVENT DATE: 20230101
